FAERS Safety Report 5893177-2 (Version None)
Quarter: 2008Q3

REPORT INFORMATION
  Report Type: 
  Country: None (occurrence: None)
  Receive Date: 20080923
  Receipt Date: 20070716
  Transmission Date: 20090109
  Serious: No
  Sender: FDA-Public Use
  Company Number: US-ASTRAZENECA-2007UW16493

PATIENT
  Sex: Male
  Weight: 86.4 kg

DRUGS (1)
  1. SEROQUEL [Suspect]
     Indication: MENTAL DISORDER
     Route: 048
     Dates: start: 20000101, end: 20060101

REACTIONS (3)
  - DIABETES MELLITUS [None]
  - HEPATITIS C [None]
  - LIVER DISORDER [None]
